FAERS Safety Report 5407854-0 (Version None)
Quarter: 2007Q3

REPORT INFORMATION
  Report Type: 
  Country: None (occurrence: None)
  Receive Date: 20070713
  Receipt Date: 20070501
  Transmission Date: 20080115
  Serious: No
  Sender: FDA-Public Use
  Company Number: 2007SP001605

PATIENT
  Age: 65 Year
  Sex: Male
  Weight: 68.0396 kg

DRUGS (6)
  1. LUNESTA [Suspect]
     Indication: MIDDLE INSOMNIA
     Dosage: 3 MG; HS; ORAL
     Route: 048
     Dates: start: 20070427
  2. OXCARBAZEPINE [Concomitant]
  3. RISPERDAL [Concomitant]
  4. CARAFATE [Concomitant]
  5. METOCLOPRAMIDE [Concomitant]
  6. KLONOPIN [Concomitant]

REACTIONS (1)
  - MIDDLE INSOMNIA [None]
